FAERS Safety Report 6703557-0 (Version None)
Quarter: 2010Q2

REPORT INFORMATION
  Report Type: 
  Country: None (occurrence: None)
  Receive Date: 20100430
  Receipt Date: 20100419
  Transmission Date: 20101027
  Serious: Yes (Other)
  Sender: FDA-Public Use
  Company Number: FR-PFIZER INC-2010048687

PATIENT

DRUGS (1)
  1. SOMAVERT [Suspect]
     Indication: ACROMEGALY

REACTIONS (1)
  - LIPODYSTROPHY ACQUIRED [None]
